FAERS Safety Report 9938384 (Version 1)
Quarter: 2014Q1

REPORT INFORMATION
  Report Type: Report from Study
  Country: US (occurrence: US)
  Receive Date: 20140303
  Receipt Date: 20140303
  Transmission Date: 20141002
  Serious: No
  Sender: FDA-Public Use
  Company Number: US-ABBVIE-13P-163-1031882-00

PATIENT
  Age: 52 Year
  Sex: Female

DRUGS (9)
  1. HUMIRA [Suspect]
     Indication: RHEUMATOID ARTHRITIS
  2. METHOTREXATE [Concomitant]
     Indication: PRODUCT USED FOR UNKNOWN INDICATION
  3. FOLIC ACID [Concomitant]
     Indication: PRODUCT USED FOR UNKNOWN INDICATION
     Dosage: 1 MG DAILY
  4. METHYLPHENIDATE ER [Concomitant]
     Indication: SLEEP DISORDER
  5. ROPINIROLE [Concomitant]
     Indication: RESTLESS LEGS SYNDROME
     Dosage: AT NIGHT
  6. PROPRANOLOL ER [Concomitant]
     Indication: MIGRAINE PROPHYLAXIS
  7. REPLAX [Concomitant]
     Indication: MIGRAINE
  8. LYRICA [Concomitant]
     Indication: PAIN
     Dosage: AT BEDTIME
  9. LYRICA [Concomitant]
     Indication: FIBROMYALGIA

REACTIONS (2)
  - Wrong technique in drug usage process [Recovering/Resolving]
  - Device malfunction [Recovering/Resolving]
